FAERS Safety Report 7642662-1 (Version None)
Quarter: 2011Q3

REPORT INFORMATION
  Report Type: 
  Country: None (occurrence: None)
  Receive Date: 20110728
  Receipt Date: 20110725
  Transmission Date: 20111222
  Serious: Yes (Other)
  Sender: FDA-Public Use
  Company Number: US-PFIZER INC-2011154162

PATIENT
  Sex: Male
  Weight: 73 kg

DRUGS (3)
  1. COLESTID [Concomitant]
     Indication: BLOOD CHOLESTEROL ABNORMAL
     Dosage: 20 MG, DAILY
     Route: 048
  2. CHANTIX [Suspect]
     Indication: SMOKING CESSATION THERAPY
     Dosage: 0.5 MG, DAILY
     Route: 048
     Dates: start: 20110601, end: 20110706
  3. CELEXA [Concomitant]
     Indication: NASAL DISORDER
     Dosage: 20 MG, DAILY
     Route: 048

REACTIONS (4)
  - NAUSEA [None]
  - CHEST DISCOMFORT [None]
  - ABDOMINAL PAIN [None]
  - DIARRHOEA [None]
